FAERS Safety Report 12289090 (Version 2)
Quarter: 2016Q2

REPORT INFORMATION
  Report Type: Report from Study
  Country: PL (occurrence: PL)
  Receive Date: 20160421
  Receipt Date: 20160422
  Transmission Date: 20160815
  Serious: Yes (Hospitalization)
  Sender: FDA-Public Use
  Company Number: PL-ROCHE-1742814

PATIENT
  Sex: Male
  Weight: 70.3 kg

DRUGS (19)
  1. BETALOC ZOK [Concomitant]
     Active Substance: METOPROLOL SUCCINATE
     Route: 065
     Dates: start: 20160318, end: 20160401
  2. PRINIVIL [Concomitant]
     Active Substance: LISINOPRIL
     Route: 065
     Dates: start: 20160318, end: 20160401
  3. ATROX (POLAND) [Concomitant]
     Route: 065
     Dates: start: 2013
  4. CLEMASTIN [Concomitant]
     Active Substance: CLEMASTINE
     Route: 065
     Dates: start: 20151229
  5. OBINUTUZUMAB [Suspect]
     Active Substance: OBINUTUZUMAB
     Route: 042
     Dates: start: 20160105, end: 20160105
  6. OBINUTUZUMAB [Suspect]
     Active Substance: OBINUTUZUMAB
     Indication: CHRONIC LYMPHOCYTIC LEUKAEMIA
     Route: 042
     Dates: start: 20151229, end: 20151230
  7. IPRES LONG [Concomitant]
  8. HEVIRAN [Concomitant]
     Active Substance: ACYCLOVIR
     Route: 065
     Dates: start: 20151229
  9. HYDROCHLOROTHIAZIDE/METOPROLOL SUCCINATE [Concomitant]
     Active Substance: HYDROCHLOROTHIAZIDE\METOPROLOL SUCCINATE
  10. PIRAMIL [Concomitant]
     Route: 065
     Dates: start: 2013
  11. MILURIT [Concomitant]
     Active Substance: ALLOPURINOL
     Route: 065
     Dates: start: 20151229
  12. PARACETAMOL [Concomitant]
     Active Substance: ACETAMINOPHEN
     Route: 065
     Dates: start: 20151229
  13. IDELALISIB [Suspect]
     Active Substance: IDELALISIB
     Indication: CHRONIC LYMPHOCYTIC LEUKAEMIA
     Dosage: MOST RECENT DOSE WAS ADMINSITERED ON 10/MAR/2016
     Route: 048
     Dates: start: 20151229
  14. DEXAVEN [Concomitant]
     Active Substance: DEXAMETHASONE
     Route: 065
     Dates: start: 20151229
  15. METOPROLOL. [Concomitant]
     Active Substance: METOPROLOL
  16. OBINUTUZUMAB [Suspect]
     Active Substance: OBINUTUZUMAB
     Route: 042
     Dates: start: 20160115, end: 20160115
  17. OBINUTUZUMAB [Suspect]
     Active Substance: OBINUTUZUMAB
     Route: 042
     Dates: start: 20160129, end: 20160129
  18. OBINUTUZUMAB [Suspect]
     Active Substance: OBINUTUZUMAB
     Route: 042
     Dates: start: 20160226, end: 20160226
  19. ACARD [Concomitant]
     Active Substance: ASPIRIN

REACTIONS (1)
  - Enteritis [Recovered/Resolved]

NARRATIVE: CASE EVENT DATE: 20160318
